FAERS Safety Report 16706166 (Version 1)
Quarter: 2019Q3

REPORT INFORMATION
  Report Type: Spontaneous
  Country: CA (occurrence: CA)
  Receive Date: 20190815
  Receipt Date: 20190815
  Transmission Date: 20191004
  Serious: Yes (Other)
  Sender: FDA-Public Use
  Company Number: CA-PFIZER INC-2019343917

PATIENT
  Age: 80 Year
  Sex: Female

DRUGS (3)
  1. PREMARIN [Suspect]
     Active Substance: ESTROGENS, CONJUGATED
     Indication: MENOPAUSE
     Dosage: 0.5 G, 2X/WEEK
     Route: 067
  2. HYDROCHLOROTHIAZIDE. [Concomitant]
     Active Substance: HYDROCHLOROTHIAZIDE
     Dosage: 12.5 MG, 1X/DAY
  3. PORCINE-FASTACT [Concomitant]
     Dosage: 1.5 DF, 1X/DAY
     Route: 065

REACTIONS (5)
  - Pharyngeal swelling [Recovered/Resolved]
  - Off label use [Unknown]
  - Face oedema [Recovered/Resolved]
  - Product use in unapproved indication [Unknown]
  - Mouth swelling [Recovered/Resolved]
